FAERS Safety Report 6195939-3 (Version None)
Quarter: 2009Q2

REPORT INFORMATION
  Report Type: 
  Country: None (occurrence: None)
  Receive Date: 20090520
  Receipt Date: 20090514
  Transmission Date: 20091009
  Serious: No
  Sender: FDA-Public Use
  Company Number: US-B.I. PHARMACEUTICALS,INC./RIDGEFIELD-2009-BP-04714BP

PATIENT
  Age: 70 Year
  Sex: Male

DRUGS (13)
  1. MIRAPEX [Suspect]
     Indication: PARKINSON'S DISEASE
     Dosage: 1.5MG
     Route: 048
     Dates: start: 20081013, end: 20081016
  2. B 12 SHOT [Concomitant]
     Route: 030
  3. VITAMIN B COMPLEX CAP [Concomitant]
  4. ASPIRIN [Concomitant]
     Dosage: 81MG
  5. LISINOPRIL [Concomitant]
     Dosage: 10MG
  6. PLAVIX [Concomitant]
  7. ISORB MONO [Concomitant]
  8. ZOLPIDEM [Concomitant]
  9. FAMOTIDINE [Concomitant]
  10. OXICO APAP [Concomitant]
  11. AMBIEN [Concomitant]
  12. LEVOTHYROXINE SODIUM [Concomitant]
  13. TRAMADOL HCL [Concomitant]

REACTIONS (4)
  - ATAXIA [None]
  - BACK PAIN [None]
  - DRUG INEFFECTIVE [None]
  - PAIN IN EXTREMITY [None]
